APPROVED DRUG PRODUCT: TRAZODONE HYDROCHLORIDE
Active Ingredient: TRAZODONE HYDROCHLORIDE
Strength: 100MG
Dosage Form/Route: TABLET;ORAL
Application: A072193 | Product #001 | TE Code: AB
Applicant: OXFORD PHARMACEUTICALS LLC
Approved: Feb 2, 1989 | RLD: No | RS: No | Type: RX